FAERS Safety Report 19282517 (Version 1)
Quarter: 2021Q2

REPORT INFORMATION
  Report Type: Spontaneous
  Country: JP (occurrence: JP)
  Receive Date: 20210520
  Receipt Date: 20210520
  Transmission Date: 20210717
  Serious: Yes (Other)
  Sender: FDA-Public Use
  Company Number: JP-LUPIN PHARMACEUTICALS INC.-2021-07634

PATIENT
  Age: 37 Year
  Sex: Female

DRUGS (2)
  1. BETAMETHASONE. [Suspect]
     Active Substance: BETAMETHASONE
     Indication: COLITIS ULCERATIVE
     Dosage: UNK (THE MOTHER OCCASIONALLY RECEIVED BETAMETHASONE SUPPOSITORIES)
     Route: 054
  2. MESALAZINE [Suspect]
     Active Substance: MESALAMINE
     Indication: COLITIS ULCERATIVE
     Dosage: 2000 MILLIGRAM, BID (THE MOTHER RECEIVED HIGH?DOSE MESALAZINE (2000 MG) TWO TIMES A DAY)
     Route: 065

REACTIONS (2)
  - Premature delivery [Unknown]
  - Exposure during pregnancy [Unknown]
